FAERS Safety Report 9716273 (Version 1)
Quarter: 2013Q4

REPORT INFORMATION
  Report Type: Spontaneous
  Country: IT (occurrence: IT)
  Receive Date: 20131127
  Receipt Date: 20131127
  Transmission Date: 20140711
  Serious: Yes (Hospitalization)
  Sender: FDA-Public Use
  Company Number: IT-BAYER-2013-141779

PATIENT
  Age: 32 Year
  Sex: Female

DRUGS (1)
  1. ASPIRINA [Suspect]
     Dosage: 325 MG, ONCE
     Route: 048
     Dates: start: 20131016, end: 20131016

REACTIONS (2)
  - Presyncope [Recovered/Resolved]
  - Urticaria [Recovered/Resolved]
